FAERS Safety Report 10301075 (Version 1)
Quarter: 2014Q3

REPORT INFORMATION
  Report Type: Spontaneous
  Country: US (occurrence: US)
  Receive Date: 20140714
  Receipt Date: 20140714
  Transmission Date: 20150326
  Serious: Yes (Other)
  Sender: FDA-Public Use
  Company Number: US-ACTELION-A-US2014-101703

PATIENT
  Age: 54 Year
  Sex: Male
  Weight: 88.5 kg

DRUGS (4)
  1. FLUOCINONIDE. [Concomitant]
     Active Substance: FLUOCINONIDE
  2. DOXYCYCLINE. [Concomitant]
     Active Substance: DOXYCYCLINE
  3. VALCHLOR [Suspect]
     Active Substance: MECHLORETHAMINE
     Indication: LYMPHOMA
     Dosage: UNK
     Route: 061
     Dates: start: 20140514, end: 20140701
  4. LIALDA [Concomitant]
     Active Substance: MESALAMINE

REACTIONS (3)
  - Disease progression [Unknown]
  - Skin discolouration [Unknown]
  - Lymphoma [Unknown]

NARRATIVE: CASE EVENT DATE: 20140701
